FAERS Safety Report 6520482-9 (Version None)
Quarter: 2009Q4

REPORT INFORMATION
  Report Type: 
  Country: None (occurrence: None)
  Receive Date: 20091229
  Receipt Date: 20091222
  Transmission Date: 20100525
  Serious: Yes (Other)
  Sender: FDA-Public Use
  Company Number: A0836746A

PATIENT
  Sex: Male

DRUGS (8)
  1. LOVAZA [Suspect]
     Indication: DRUG USE FOR UNKNOWN INDICATION
     Route: 048
  2. CELEXA [Concomitant]
  3. PRILOSEC [Concomitant]
  4. CRESTOR [Concomitant]
  5. HYDROCODONE [Concomitant]
  6. ATIVAN [Concomitant]
  7. ZANAFLEX [Concomitant]
  8. PLAVIX [Concomitant]

REACTIONS (1)
  - LUNG NEOPLASM MALIGNANT [None]
